FAERS Safety Report 13037718 (Version 1)
Quarter: 2016Q4

REPORT INFORMATION
  Report Type: Spontaneous
  Country: US (occurrence: US)
  Receive Date: 20161217
  Receipt Date: 20161217
  Transmission Date: 20170207
  Serious: Yes (Hospitalization, Other)
  Sender: FDA-Public Use
  Company Number: US-MYLANLABS-2016M1055515

PATIENT

DRUGS (1)
  1. MORPHINE [Suspect]
     Active Substance: MORPHINE
     Indication: BACK PAIN
     Route: 042

REACTIONS (3)
  - Intentional product misuse [Recovered/Resolved]
  - Pericarditis [Recovered/Resolved]
  - Incorrect route of drug administration [Recovered/Resolved]
